FAERS Safety Report 18221844 (Version 1)
Quarter: 2020Q3

REPORT INFORMATION
  Report Type: Spontaneous
  Country: DE (occurrence: DE)
  Receive Date: 20200902
  Receipt Date: 20200902
  Transmission Date: 20201103
  Serious: Yes (Other)
  Sender: FDA-Public Use
  Company Number: DE-PFIZER INC-2020336928

PATIENT

DRUGS (1)
  1. CYTOTEC [Suspect]
     Active Substance: MISOPROSTOL
     Indication: LABOUR INDUCTION
     Dosage: UNK
     Route: 064
     Dates: start: 20150626, end: 20150626

REACTIONS (4)
  - Foetal exposure during delivery [Unknown]
  - Neonatal asphyxia [Unknown]
  - Cardiovascular disorder [Unknown]
  - Neonatal behavioural syndrome [Unknown]

NARRATIVE: CASE EVENT DATE: 20150626
